FAERS Safety Report 19026702 (Version 3)
Quarter: 2021Q2

REPORT INFORMATION
  Report Type: Spontaneous
  Country: JP (occurrence: JP)
  Receive Date: 20210318
  Receipt Date: 20210609
  Transmission Date: 20210717
  Serious: Yes (Death, Other)
  Sender: FDA-Public Use
  Company Number: JP-PFIZER INC-2021252976

PATIENT
  Age: 67 Year
  Sex: Male

DRUGS (1)
  1. TOVIAZ [Suspect]
     Active Substance: FESOTERODINE FUMARATE
     Dosage: 4 MG
     Route: 048

REACTIONS (3)
  - Death [Fatal]
  - Visual acuity reduced [Unknown]
  - Blindness unilateral [Unknown]
